FAERS Safety Report 4914346-1 (Version None)
Quarter: 2006Q1

REPORT INFORMATION
  Report Type: 
  Country: None (occurrence: None)
  Receive Date: 20060213
  Receipt Date: 20060126
  Transmission Date: 20060701
  Serious: Yes (Other)
  Sender: FDA-Public Use
  Company Number: 2006-01-0058

PATIENT
  Age: 61 Year
  Sex: Male
  Weight: 113.3993 kg

DRUGS (2)
  1. LORATADINE [Suspect]
     Indication: HYPERSENSITIVITY
     Dosage: DAILY ORAL
     Route: 048
     Dates: start: 20051224, end: 20051228
  2. LORATADINE [Suspect]
     Indication: SELF-MEDICATION
     Dosage: DAILY ORAL
     Route: 048
     Dates: start: 20051224, end: 20051228

REACTIONS (2)
  - ABDOMINAL PAIN [None]
  - DIARRHOEA HAEMORRHAGIC [None]
